FAERS Safety Report 14447137 (Version 1)
Quarter: 2018Q1

REPORT INFORMATION
  Report Type: Spontaneous
  Country: GB (occurrence: GB)
  Receive Date: 20180126
  Receipt Date: 20180126
  Transmission Date: 20180509
  Serious: Yes (Other)
  Sender: FDA-Public Use
  Company Number: GB-PFIZER INC-2018031690

PATIENT
  Age: 71 Year
  Sex: Male
  Weight: 87.2 kg

DRUGS (7)
  1. ACETYLSALICYLIC ACID [Concomitant]
     Active Substance: ASPIRIN
     Dosage: UNK
  2. DALCETRAPIB. [Concomitant]
     Active Substance: DALCETRAPIB
     Dosage: UNK
  3. LANSOPRAZOLE. [Concomitant]
     Active Substance: LANSOPRAZOLE
     Dosage: UNK
  4. TICAGRELOR. [Concomitant]
     Active Substance: TICAGRELOR
     Dosage: UNK
  5. GLYCERYL TRINITRATE [Concomitant]
     Active Substance: NITROGLYCERIN
     Dosage: UNK
  6. ATORVASTATIN [Suspect]
     Active Substance: ATORVASTATIN
     Indication: ACUTE CORONARY SYNDROME
     Dosage: 80 MG, UNK
     Route: 048
     Dates: start: 20170801, end: 20171217
  7. AMLODIPINE [Concomitant]
     Active Substance: AMLODIPINE BESYLATE
     Dosage: UNK

REACTIONS (3)
  - Nausea [Recovering/Resolving]
  - Asthenia [Recovering/Resolving]
  - Liver function test abnormal [Recovered/Resolved]

NARRATIVE: CASE EVENT DATE: 20171217
